FAERS Safety Report 25376146 (Version 2)
Quarter: 2025Q3

REPORT INFORMATION
  Report Type: Spontaneous
  Country: US (occurrence: US)
  Receive Date: 20250529
  Receipt Date: 20250710
  Transmission Date: 20251021
  Serious: No
  Sender: MERCK SHARP & DOHME LLC
  Company Number: US-009507513-2282442

PATIENT
  Sex: Female
  Weight: 65.8 kg

DRUGS (12)
  1. SOTATERCEPT [Suspect]
     Active Substance: SOTATERCEPT
     Indication: Product used for unknown indication
     Dates: start: 2022
  2. SOTATERCEPT [Suspect]
     Active Substance: SOTATERCEPT
  3. SOTATERCEPT [Suspect]
     Active Substance: SOTATERCEPT
  4. SOTATERCEPT [Suspect]
     Active Substance: SOTATERCEPT
  5. CLIMARA [Concomitant]
     Active Substance: ESTRADIOL
  6. VITAMINS [Concomitant]
     Active Substance: VITAMINS
  7. ACETAMINOPHEN [Concomitant]
     Active Substance: ACETAMINOPHEN
  8. OXYGEN [Concomitant]
     Active Substance: OXYGEN
  9. REVATIO [Concomitant]
     Active Substance: SILDENAFIL CITRATE
  10. LETAIRIS [Concomitant]
     Active Substance: AMBRISENTAN
  11. REMODULIN [Suspect]
     Active Substance: TREPROSTINIL
     Indication: Pulmonary arterial hypertension
     Route: 041
     Dates: start: 20090604
  12. OXYGEN [Concomitant]
     Active Substance: OXYGEN

REACTIONS (1)
  - Haemoglobin increased [Unknown]

NARRATIVE: CASE EVENT DATE: 20220101
